FAERS Safety Report 22813708 (Version 2)
Quarter: 2023Q4

REPORT INFORMATION
  Report Type: Spontaneous
  Country: US (occurrence: US)
  Receive Date: 20230811
  Receipt Date: 20231020
  Transmission Date: 20240110
  Serious: Yes (Other)
  Sender: FDA-Public Use
  Company Number: US-PHARMAESSENTIA-US-2023-PEC-001834

PATIENT
  Sex: Female

DRUGS (1)
  1. BESREMI [Suspect]
     Active Substance: ROPEGINTERFERON ALFA-2B-NJFT
     Indication: Essential thrombocythaemia
     Dosage: 100 MCG, Q2W, 50 MICROGRAMS EVERY 2 WEEKS AS DIRECTED OR UNTIL MAX 500 MICROGRAMS
     Route: 058
     Dates: start: 20220802

REACTIONS (3)
  - Foot operation [Unknown]
  - Off label use [Unknown]
  - Pain in extremity [Unknown]
